FAERS Safety Report 5770655-8 (Version None)
Quarter: 2008Q2

REPORT INFORMATION
  Report Type: 
  Country: None (occurrence: None)
  Receive Date: 20080613
  Receipt Date: 20080507
  Transmission Date: 20081010
  Serious: No
  Sender: FDA-Public Use
  Company Number: US-ABBOTT-08P-163-0451161-00

PATIENT
  Sex: Female
  Weight: 66.738 kg

DRUGS (4)
  1. HUMIRA [Suspect]
     Indication: RHEUMATOID ARTHRITIS
     Route: 058
     Dates: start: 20080414
  2. METHYLPREDNISOLONE [Concomitant]
     Indication: RHEUMATOID ARTHRITIS
     Dosage: TAPERED DOSING
     Route: 048
     Dates: start: 20080401
  3. ULTRACET [Concomitant]
     Indication: PAIN
     Dosage: 37.5 UP TO 4 TABLETS PER DAY
     Route: 048
     Dates: start: 20080421
  4. HYDROCODONE [Concomitant]
     Indication: ARTHRALGIA
     Route: 048
     Dates: start: 20060101

REACTIONS (1)
  - DRUG INEFFECTIVE [None]
